FAERS Safety Report 8427897-2 (Version None)
Quarter: 2012Q2

REPORT INFORMATION
  Report Type: 
  Country: None (occurrence: None)
  Receive Date: 20120611
  Receipt Date: 20120604
  Transmission Date: 20120825
  Serious: Yes (Other)
  Sender: FDA-Public Use
  Company Number: HU-ROCHE-1076288

PATIENT
  Age: 38 Year
  Sex: Female

DRUGS (5)
  1. SYMBICORT [Concomitant]
  2. ACCOLATE [Concomitant]
  3. VENTOLIN [Concomitant]
  4. XOLAIR [Suspect]
     Indication: ASTHMA
     Dates: start: 20110225, end: 20111107
  5. METYPRED (HUNGARY) [Concomitant]
     Dates: start: 20110318, end: 20110519

REACTIONS (6)
  - RASH PRURITIC [None]
  - IMPAIRED HEALING [None]
  - EXFOLIATIVE RASH [None]
  - PAPULE [None]
  - URTICARIA [None]
  - FIXED ERUPTION [None]
